FAERS Safety Report 23328056 (Version 1)
Quarter: 2023Q4

REPORT INFORMATION
  Report Type: Spontaneous
  Country: NL (occurrence: NL)
  Receive Date: 20231221
  Receipt Date: 20231221
  Transmission Date: 20240110
  Serious: Yes (Congenital Anomaly, Other)
  Sender: FDA-Public Use
  Company Number: NL-AMGEN-NLDSP2023146495

PATIENT

DRUGS (2)
  1. ADALIMUMAB [Suspect]
     Active Substance: ADALIMUMAB\ISOPROPYL ALCOHOL
     Indication: Exposure during pregnancy
     Dosage: UNK
     Route: 064
  2. THIOGUANINE [Concomitant]
     Active Substance: THIOGUANINE
     Indication: Exposure during pregnancy
     Dosage: UNK
     Route: 065

REACTIONS (1)
  - Cleft palate [Unknown]
